FAERS Safety Report 7657542-5 (Version None)
Quarter: 2011Q3

REPORT INFORMATION
  Report Type: 
  Country: None (occurrence: None)
  Receive Date: 20110804
  Receipt Date: 20110726
  Transmission Date: 20111222
  Serious: Yes (Other)
  Sender: FDA-Public Use
  Company Number: NL-AMGEN-NLDSP2011032333

PATIENT
  Age: 45 Year
  Sex: Female
  Weight: 127 kg

DRUGS (1)
  1. ENBREL [Suspect]
     Indication: PSORIATIC ARTHROPATHY
     Dosage: 50 MG, WEEKLY
     Dates: start: 20040101

REACTIONS (4)
  - SKIN INFECTION [None]
  - WEIGHT INCREASED [None]
  - FATIGUE [None]
  - CUTANEOUS SARCOIDOSIS [None]
